FAERS Safety Report 12651160 (Version 1)
Quarter: 2016Q3

REPORT INFORMATION
  Report Type: Spontaneous
  Country: US (occurrence: None)
  Receive Date: 20160812
  Receipt Date: 20160812
  Transmission Date: 20161109
  Serious: Yes (Hospitalization)
  Sender: FDA-Public Use
  Company Number: None

PATIENT
  Age: 1 Year
  Sex: Female
  Weight: 12.4 kg

DRUGS (5)
  1. ONCASPAR [Suspect]
     Active Substance: PEGASPARGASE
     Dates: end: 20160722
  2. MERCAPTOPURINE. [Suspect]
     Active Substance: MERCAPTOPURINE
     Dates: end: 20160722
  3. CYTARABINE. [Suspect]
     Active Substance: CYTARABINE
     Dates: end: 20160718
  4. CYCLOPHOSPHAMIDE. [Suspect]
     Active Substance: CYCLOPHOSPHAMIDE
     Dates: end: 20160708
  5. VINCRISTINE SULFATE. [Suspect]
     Active Substance: VINCRISTINE SULFATE
     Dates: end: 20160729

REACTIONS (9)
  - Atelectasis [None]
  - Pseudomonas test positive [None]
  - Febrile neutropenia [None]
  - Enterovirus infection [None]
  - Bacterial infection [None]
  - Rhinovirus infection [None]
  - Skin disorder [None]
  - Pneumonia [None]
  - Bacillus infection [None]

NARRATIVE: CASE EVENT DATE: 20160724
